FAERS Safety Report 4431635-8 (Version None)
Quarter: 2004Q3

REPORT INFORMATION
  Report Type: 
  Country: None (occurrence: None)
  Receive Date: 20040721
  Receipt Date: 20040205
  Transmission Date: 20050211
  Serious: Yes (Disabling)
  Sender: FDA-Public Use
  Company Number: WAES 0402USA00721

PATIENT
  Age: 36 Year
  Sex: Male

DRUGS (13)
  1. VIOXX [Suspect]
     Indication: ARTHRITIS
     Dosage: PO; 50 MG/BID/PO
     Route: 048
     Dates: start: 20030601, end: 20030801
  2. VIOXX [Suspect]
     Indication: PAIN
     Dosage: PO; 50 MG/BID/PO
     Route: 048
     Dates: start: 20030601, end: 20030801
  3. VIOXX [Suspect]
     Indication: ARTHRITIS
     Dosage: PO; 50 MG/BID/PO
     Route: 048
     Dates: start: 20020601
  4. VIOXX [Suspect]
     Indication: PAIN
     Dosage: PO; 50 MG/BID/PO
     Route: 048
     Dates: start: 20020601
  5. MOTRIN [Concomitant]
  6. NEUROTON [Concomitant]
  7. RISPERDAL [Concomitant]
  8. VICODIN [Concomitant]
  9. ZYPREXA [Concomitant]
  10. GLUCOSAMINE [Concomitant]
  11. LITHIUM ACETATE [Concomitant]
  12. VIOXX [Suspect]
     Indication: ARTHRITIS
     Dosage: 25 MG/BID/PO
     Route: 048
     Dates: start: 20030601, end: 20030801
  13. VIOXX [Suspect]
     Indication: PAIN
     Dosage: 25 MG/BID/PO
     Route: 048
     Dates: start: 20030601, end: 20030801

REACTIONS (9)
  - ANXIETY [None]
  - BACK PAIN [None]
  - CONDYLOMA ACUMINATUM [None]
  - DRUG INEFFECTIVE [None]
  - HEART RATE INCREASED [None]
  - HYPOAESTHESIA [None]
  - OVERDOSE [None]
  - POST-TRAUMATIC STRESS DISORDER [None]
  - SENSORY LOSS [None]
